FAERS Safety Report 14419549 (Version 8)
Quarter: 2019Q2

REPORT INFORMATION
  Report Type: Not Available
  Country: US (occurrence: US)
  Receive Date: 20180122
  Receipt Date: 20190606
  Transmission Date: 20190711
  Serious: Yes (Other)
  Sender: FDA-Public Use
  Company Number: US-NEUROCRINE BIOSCIENCES INC.-2017NBI01409

PATIENT
  Age: 40 Year
  Sex: Male

DRUGS (6)
  1. INGREZZA [Suspect]
     Active Substance: VALBENAZINE
     Indication: TARDIVE DYSKINESIA
     Route: 048
     Dates: start: 20170907, end: 20170913
  2. INGREZZA [Suspect]
     Active Substance: VALBENAZINE
     Route: 048
     Dates: start: 20170914
  3. BOTOX [Suspect]
     Active Substance: ONABOTULINUMTOXINA
     Indication: PRODUCT USED FOR UNKNOWN INDICATION
  4. COGENTIN [Suspect]
     Active Substance: BENZTROPINE MESYLATE
     Indication: PRODUCT USED FOR UNKNOWN INDICATION
  5. DICLOFENAC [Concomitant]
     Active Substance: DICLOFENAC
  6. TRAMADOL. [Concomitant]
     Active Substance: TRAMADOL

REACTIONS (12)
  - Malaise [Unknown]
  - Therapeutic product effect decreased [None]
  - Depressed mood [Unknown]
  - Asthenia [Unknown]
  - Self-injurious ideation [Unknown]
  - Drug ineffective [None]
  - Muscle spasms [Unknown]
  - Muscle tightness [Not Recovered/Not Resolved]
  - Fatigue [Unknown]
  - Suicidal ideation [Unknown]
  - Speech disorder [Unknown]
  - Tardive dyskinesia [Unknown]

NARRATIVE: CASE EVENT DATE: 20171031
